FAERS Safety Report 15096503 (Version 2)
Quarter: 2018Q3

REPORT INFORMATION
  Report Type: Report from Study
  Country: CO (occurrence: CO)
  Receive Date: 20180702
  Receipt Date: 20180809
  Transmission Date: 20181010
  Serious: Yes (Other)
  Sender: FDA-Public Use
  Company Number: PHHY2018CO031486

PATIENT
  Sex: Female
  Weight: 53 kg

DRUGS (1)
  1. AFINITOR [Suspect]
     Active Substance: EVEROLIMUS
     Indication: BREAST CANCER
     Dosage: 10 MG, QD
     Route: 048
     Dates: start: 20180410

REACTIONS (5)
  - Femur fracture [Unknown]
  - Gait disturbance [Unknown]
  - Stomatitis [Recovering/Resolving]
  - Rash [Unknown]
  - Metastases to bone [Unknown]
